FAERS Safety Report 8268763-5 (Version None)
Quarter: 2012Q2

REPORT INFORMATION
  Report Type: 
  Country: None (occurrence: None)
  Receive Date: 20120409
  Receipt Date: 20120409
  Transmission Date: 20120825
  Serious: Yes (Hospitalization)
  Sender: FDA-Public Use
  Company Number: None

PATIENT
  Sex: Female
  Weight: 77 kg

DRUGS (6)
  1. ALOXI [Concomitant]
  2. LORAZEPAM [Concomitant]
  3. DOCETAXEL [Suspect]
     Indication: BREAST CANCER
     Dosage: 140 MG
     Route: 041
     Dates: start: 20120214, end: 20120214
  4. CYCLOPHOSPHAMIDE [Concomitant]
  5. NEULASTA [Concomitant]
  6. DEXAMETHASONE [Concomitant]

REACTIONS (4)
  - ABDOMINAL PAIN [None]
  - ABDOMINAL PAIN LOWER [None]
  - GASTROINTESTINAL TOXICITY [None]
  - COLITIS [None]
